FAERS Safety Report 17287132 (Version 4)
Quarter: 2020Q4

REPORT INFORMATION
  Report Type: Other
  Country: US (occurrence: US)
  Receive Date: 20200120
  Receipt Date: 20201006
  Transmission Date: 20210113
  Serious: Yes (Hospitalization, Other)
  Sender: FDA-Public Use
  Company Number: US-ROCHE-2383800

PATIENT
  Age: 63 Year
  Sex: Female

DRUGS (10)
  1. CLONAZEPAM. [Concomitant]
     Active Substance: CLONAZEPAM
  2. BACLOFEN. [Concomitant]
     Active Substance: BACLOFEN
  3. CITALOPRAM [Concomitant]
     Active Substance: CITALOPRAM HYDROBROMIDE
  4. ATORVASTATIN [Concomitant]
     Active Substance: ATORVASTATIN
  5. BUSPIRONE [Concomitant]
     Active Substance: BUSPIRONE HYDROCHLORIDE
  6. OCREVUS [Suspect]
     Active Substance: OCRELIZUMAB
     Indication: RELAPSING-REMITTING MULTIPLE SCLEROSIS
     Route: 042
     Dates: start: 20190523
  7. ALBUTEROL. [Concomitant]
     Active Substance: ALBUTEROL
  8. FUROSEMIDE. [Concomitant]
     Active Substance: FUROSEMIDE
  9. OCREVUS [Suspect]
     Active Substance: OCRELIZUMAB
     Route: 042
     Dates: start: 20191206
  10. MAGNESIUM OXIDE. [Concomitant]
     Active Substance: MAGNESIUM OXIDE

REACTIONS (20)
  - Bedridden [Recovered/Resolved]
  - Traumatic lung injury [Not Recovered/Not Resolved]
  - Cardiac disorder [Not Recovered/Not Resolved]
  - Nausea [Recovered/Resolved]
  - Chest pain [Recovered/Resolved]
  - Breast pain [Recovered/Resolved]
  - Fatigue [Not Recovered/Not Resolved]
  - Dyspnoea [Recovered/Resolved]
  - Pneumonia [Not Recovered/Not Resolved]
  - Throat tightness [Recovered/Resolved]
  - Cough [Recovered/Resolved]
  - Abdominal discomfort [Recovered/Resolved]
  - Tachycardia [Recovered/Resolved]
  - Throat irritation [Recovered/Resolved]
  - Chest discomfort [Unknown]
  - Migraine [Recovered/Resolved]
  - Feeling of despair [Unknown]
  - Paraesthesia [Recovered/Resolved]
  - Weight decreased [Unknown]
  - Dyspnoea [Recovered/Resolved]

NARRATIVE: CASE EVENT DATE: 20190523
